FAERS Safety Report 25566038 (Version 1)
Quarter: 2025Q3

REPORT INFORMATION
  Report Type: Spontaneous
  Country: US (occurrence: None)
  Receive Date: 20250715
  Receipt Date: 20250715
  Transmission Date: 20251021
  Serious: Yes (Other)
  Sender: FDA-CTU
  Company Number: None

PATIENT
  Age: 44 Year
  Sex: Female
  Weight: 69.75 kg

DRUGS (1)
  1. COSMETICS [Suspect]
     Active Substance: COSMETICS
     Indication: Therapeutic skin care topical
     Dosage: OTHER QUANTITY : 1 STICK;?FREQUENCY : DAILY;?
     Route: 061
     Dates: start: 20250622, end: 20250702

REACTIONS (4)
  - Application site pruritus [None]
  - Application site erythema [None]
  - Application site rash [None]
  - Drug ineffective [None]

NARRATIVE: CASE EVENT DATE: 20250701
